FAERS Safety Report 7321694-7 (Version None)
Quarter: 2011Q1

REPORT INFORMATION
  Report Type: 
  Country: None (occurrence: None)
  Receive Date: 20110228
  Receipt Date: 20100714
  Transmission Date: 20110831
  Serious: Yes (Other)
  Sender: FDA-Public Use
  Company Number: US-PFIZER INC-2010088563

PATIENT
  Sex: Female

DRUGS (1)
  1. GEODON [Suspect]
     Indication: MANIA
     Dosage: 20 MG MORNING, 40 MG NIGHT

REACTIONS (2)
  - HYPOMANIA [None]
  - FATIGUE [None]
